FAERS Safety Report 13331920 (Version 1)
Quarter: 2017Q1

REPORT INFORMATION
  Report Type: Spontaneous
  Country: US (occurrence: US)
  Receive Date: 20170314
  Receipt Date: 20170314
  Transmission Date: 20170428
  Serious: No
  Sender: FDA-Public Use
  Company Number: US-JNJFOC-20170201934

PATIENT
  Sex: Female

DRUGS (1)
  1. TYLENOL REGULAR STRENGTH [Suspect]
     Active Substance: ACETAMINOPHEN
     Indication: NASOPHARYNGITIS
     Route: 048
     Dates: start: 20170201

REACTIONS (3)
  - Poor quality drug administered [Unknown]
  - Product closure removal difficult [Unknown]
  - Product physical issue [Unknown]

NARRATIVE: CASE EVENT DATE: 20170201
